FAERS Safety Report 8889732 (Version 1)
Quarter: 2012Q4

REPORT INFORMATION
  Report Type: 
  Country: US (occurrence: US)
  Receive Date: 20121107
  Receipt Date: 20121107
  Transmission Date: 20130627
  Serious: Yes (Hospitalization)
  Sender: FDA-Public Use
  Company Number: US-009507513-1210USA013926

PATIENT
  Age: 62 Year
  Sex: Female
  Weight: 97.51 kg

DRUGS (12)
  1. VICTRELIS [Suspect]
     Indication: HEPATITIS C
     Dosage: 800 mg, tid (every 7-9 hours)
     Route: 048
     Dates: end: 20121016
  2. RIBAVIRIN [Suspect]
     Indication: HEPATITIS C
     Dosage: UNK
     Dates: end: 20121016
  3. IRON (UNSPECIFIED) [Concomitant]
  4. EPOGEN [Concomitant]
     Dosage: 10000/ML
  5. NEURONTIN [Concomitant]
  6. ALLEGRA ALLERGY [Concomitant]
  7. ZESTRIL [Concomitant]
  8. TOPROL XL TABLETS [Concomitant]
  9. SYNTHROID [Concomitant]
  10. ZANTAC [Concomitant]
  11. NEXIUM [Concomitant]
  12. ASPIRIN [Concomitant]

REACTIONS (6)
  - Haemoglobin decreased [Unknown]
  - Dry mouth [Unknown]
  - Ageusia [Unknown]
  - Fall [Unknown]
  - Dizziness [Unknown]
  - Diarrhoea [Unknown]
